FAERS Safety Report 9331226 (Version 1)
Quarter: 2013Q2

REPORT INFORMATION
  Report Type: Spontaneous
  Country: US (occurrence: US)
  Receive Date: 20130605
  Receipt Date: 20130605
  Transmission Date: 20140414
  Serious: Yes (Other)
  Sender: FDA-Public Use
  Company Number: US-TEVA-409485USA

PATIENT
  Age: 78 Year
  Sex: Female
  Weight: 90.7 kg

DRUGS (1)
  1. FEXOFENADINE [Suspect]
     Indication: SEASONAL ALLERGY
     Dosage: 180 MILLIGRAM DAILY;
     Route: 048
     Dates: start: 20130519, end: 20130519

REACTIONS (3)
  - Hallucination [Recovered/Resolved]
  - Amnesia [Recovered/Resolved]
  - Drug administered to patient of inappropriate age [Unknown]
